FAERS Safety Report 12936258 (Version 1)
Quarter: 2016Q4

REPORT INFORMATION
  Report Type: Spontaneous
  Country: FR (occurrence: FR)
  Receive Date: 20161114
  Receipt Date: 20161114
  Transmission Date: 20170207
  Serious: Yes (Hospitalization)
  Sender: FDA-Public Use
  Company Number: FR-ROCHE-1853346

PATIENT
  Age: 71 Year
  Sex: Female

DRUGS (7)
  1. TRIATEC (FRANCE) [Concomitant]
     Active Substance: RAMIPRIL
  2. MOXYDAR [Concomitant]
     Active Substance: ALUMINUM HYDROXIDE\ALUMINUM PHOSPHATE\GUAR GUM\MAGNESIUM HYDROXIDE
  3. IRINOTECAN [Suspect]
     Active Substance: IRINOTECAN
     Indication: COLORECTAL ADENOCARCINOMA
     Route: 042
     Dates: start: 20141223, end: 201606
  4. AVASTIN [Suspect]
     Active Substance: BEVACIZUMAB
     Indication: COLORECTAL ADENOCARCINOMA
     Route: 042
     Dates: start: 20150108
  5. FLUOROURACIL. [Suspect]
     Active Substance: FLUOROURACIL
     Indication: COLORECTAL ADENOCARCINOMA
     Route: 042
     Dates: start: 20141223, end: 201606
  6. XELODA [Suspect]
     Active Substance: CAPECITABINE
     Indication: COLORECTAL ADENOCARCINOMA
     Route: 048
     Dates: start: 20160712
  7. CALYPTOL (FRANCE) [Concomitant]

REACTIONS (1)
  - Trigger finger [Not Recovered/Not Resolved]

NARRATIVE: CASE EVENT DATE: 2016
